FAERS Safety Report 8248922-8 (Version None)
Quarter: 2012Q2

REPORT INFORMATION
  Report Type: 
  Country: None (occurrence: None)
  Receive Date: 20120402
  Receipt Date: 20120320
  Transmission Date: 20120825
  Serious: Yes (Other)
  Sender: FDA-Public Use
  Company Number: FR-BRISTOL-MYERS SQUIBB COMPANY-16483950

PATIENT
  Age: 50 Year
  Sex: Male

DRUGS (4)
  1. LEUCOVORIN CALCIUM [Concomitant]
     Indication: COLORECTAL CANCER METASTATIC
  2. FLUOROURACIL [Concomitant]
     Indication: COLORECTAL CANCER METASTATIC
  3. ERBITUX [Suspect]
     Indication: COLORECTAL CANCER METASTATIC
     Dosage: THERAPY DURATION: 3 COURSES
     Route: 042
  4. OXALIPLATIN [Concomitant]
     Indication: COLORECTAL CANCER METASTATIC
     Dosage: SOLUTION FOR INJECTION

REACTIONS (1)
  - CELL DEATH [None]
